FAERS Safety Report 12717081 (Version 1)
Quarter: 2016Q3

REPORT INFORMATION
  Report Type: Spontaneous
  Country: US (occurrence: US)
  Receive Date: 20160906
  Receipt Date: 20160906
  Transmission Date: 20161109
  Serious: Yes (Hospitalization)
  Sender: FDA-Public Use
  Company Number: None

PATIENT
  Age: 71 Year
  Sex: Female
  Weight: 54 kg

DRUGS (16)
  1. DULERA [Concomitant]
     Active Substance: FORMOTEROL FUMARATE DIHYDRATE\MOMETASONE FUROATE
  2. RANITIDINE. [Concomitant]
     Active Substance: RANITIDINE
  3. ESSENTIAL OILS. [Concomitant]
     Active Substance: ESSENTIAL OILS
  4. ACTONEL [Suspect]
     Active Substance: RISEDRONATE SODIUM
  5. FLUTICASONE PROPANATE [Concomitant]
  6. ALLEGRA [Concomitant]
     Active Substance: FEXOFENADINE HYDROCHLORIDE
  7. CLONOZAPAN [Concomitant]
  8. FISH OIL [Concomitant]
     Active Substance: FISH OIL
  9. VITAMIN D [Concomitant]
     Active Substance: CHOLECALCIFEROL
  10. CALCIUM [Concomitant]
     Active Substance: CALCIUM
  11. FOSAMAX [Suspect]
     Active Substance: ALENDRONATE SODIUM
     Indication: OSTEOPENIA
     Route: 048
  12. VITAMIN B12 [Concomitant]
     Active Substance: CYANOCOBALAMIN
  13. FOLIC ACID. [Concomitant]
     Active Substance: FOLIC ACID
  14. BONIVA [Suspect]
     Active Substance: IBANDRONATE SODIUM
  15. PATADAY [Concomitant]
     Active Substance: OLOPATADINE HYDROCHLORIDE
  16. CELEBREX [Concomitant]
     Active Substance: CELECOXIB

REACTIONS (9)
  - Periarthritis [None]
  - Femur fracture [None]
  - Stress fracture [None]
  - Epicondylitis [None]
  - Pain [None]
  - Fracture nonunion [None]
  - Bursitis [None]
  - Road traffic accident [None]
  - Fall [None]

NARRATIVE: CASE EVENT DATE: 20160329
